FAERS Safety Report 4781219-7 (Version None)
Quarter: 2005Q3

REPORT INFORMATION
  Report Type: 
  Country: None (occurrence: None)
  Receive Date: 20050928
  Receipt Date: 20050915
  Transmission Date: 20060218
  Serious: Yes (Hospitalization, Other)
  Sender: FDA-Public Use
  Company Number: 200512668JP

PATIENT
  Sex: Female

DRUGS (2)
  1. KETEK [Suspect]
     Route: 048
  2. CLARITHROMYCIN [Concomitant]

REACTIONS (3)
  - DISSEMINATED INTRAVASCULAR COAGULATION [None]
  - LEUKOPENIA [None]
  - THROMBOCYTOPENIA [None]
